FAERS Safety Report 5025234-7 (Version None)
Quarter: 2006Q2

REPORT INFORMATION
  Report Type: 
  Country: None (occurrence: None)
  Receive Date: 20060426
  Receipt Date: 20060130
  Transmission Date: 20061013
  Serious: Yes (Other)
  Sender: FDA-Public Use
  Company Number: 2006015696

PATIENT
  Age: 60 Year
  Sex: Female
  Weight: 87.5442 kg

DRUGS (10)
  1. LYRICA [Suspect]
     Indication: NEURALGIA
     Dosage: 100 MG (50 MG,2 IN 1 D)
     Dates: start: 20051217
  2. ZOCOR (SIMVASTATIN)S [Suspect]
     Indication: BLOOD CHOLESTEROL INCREASED
     Dosage: 20 MG (20 MG,1 IN 1 D),ORAL
     Route: 048
     Dates: end: 20060101
  3. PROTONIX [Concomitant]
  4. ATENOLOL [Concomitant]
  5. HYDROCHLOROTHIAZIDE [Concomitant]
  6. CLONAZEPAM [Concomitant]
  7. LISINOPRIL [Concomitant]
  8. PREMARIN [Concomitant]
  9. CYMBALTA [Concomitant]
  10. FLEXERIL [Concomitant]

REACTIONS (6)
  - ANOREXIA [None]
  - BRONCHITIS [None]
  - DRUG INEFFECTIVE [None]
  - INSOMNIA [None]
  - MYALGIA [None]
  - NAUSEA [None]
